FAERS Safety Report 5919367-8 (Version None)
Quarter: 2008Q4

REPORT INFORMATION
  Report Type: 
  Country: None (occurrence: None)
  Receive Date: 20081015
  Receipt Date: 20081010
  Transmission Date: 20090506
  Serious: Yes (Death, Life-Threatening, Hospitalization)
  Sender: FDA-Public Use
  Company Number: B0485088A

PATIENT
  Age: 49 Year
  Sex: Male

DRUGS (22)
  1. EPZICOM [Suspect]
     Indication: ACQUIRED IMMUNODEFICIENCY SYNDROME
     Route: 048
     Dates: start: 20061212, end: 20070319
  2. COMBIVIR [Suspect]
     Indication: ACQUIRED IMMUNODEFICIENCY SYNDROME
     Route: 048
     Dates: start: 20061114, end: 20061211
  3. KALETRA [Suspect]
     Indication: ACQUIRED IMMUNODEFICIENCY SYNDROME
     Route: 048
     Dates: start: 20061114, end: 20070223
  4. VALGANCICLOVIR HCL [Suspect]
     Route: 048
     Dates: start: 20061123, end: 20070414
  5. FOSCAVIR [Suspect]
     Route: 042
     Dates: start: 20061123, end: 20070201
  6. REYATAZ [Concomitant]
     Indication: ACQUIRED IMMUNODEFICIENCY SYNDROME
     Route: 048
     Dates: start: 20070224, end: 20070319
  7. COTRIM [Concomitant]
     Indication: ANTIFUNGAL PROPHYLAXIS
     Route: 048
     Dates: start: 20061106, end: 20061122
  8. DIFLUCAN [Concomitant]
     Dosage: 100MG AS DIRECTED
     Route: 065
     Dates: start: 20061108, end: 20070127
  9. ROCEPHIN [Concomitant]
     Indication: SYPHILIS
     Route: 042
     Dates: start: 20061025, end: 20061123
  10. GASTER D [Concomitant]
     Dosage: 10MG PER DAY
     Route: 048
     Dates: start: 20061116, end: 20070306
  11. UNKNOWN DRUG [Concomitant]
     Indication: ANTIFUNGAL PROPHYLAXIS
     Dosage: 750MG TWICE PER DAY
     Route: 065
     Dates: start: 20061122
  12. FUNGIZONE [Concomitant]
     Indication: INFECTION PROPHYLAXIS
     Route: 002
     Dates: start: 20061103, end: 20070210
  13. FAMOTIDINE [Concomitant]
     Dosage: 20MG PER DAY
     Route: 042
     Dates: start: 20070307, end: 20070414
  14. FUROSEMIDE [Concomitant]
     Dosage: 20MG PER DAY
     Route: 042
     Dates: start: 20070312, end: 20070414
  15. MUCOSTA [Concomitant]
     Dosage: 100MG THREE TIMES PER DAY
     Route: 042
     Dates: start: 20070116, end: 20070228
  16. ZITHROMAX [Concomitant]
     Indication: MYCOBACTERIUM AVIUM COMPLEX INFECTION
     Route: 048
     Dates: start: 20061106, end: 20070414
  17. MEBRON [Concomitant]
     Indication: ANTIFUNGAL PROPHYLAXIS
     Dosage: 1500MG PER DAY
     Route: 048
     Dates: start: 20070414
  18. SULFADIAZINE [Concomitant]
     Indication: CEREBRAL TOXOPLASMOSIS
     Dates: start: 20070414
  19. FOLIAMIN [Concomitant]
     Indication: CEREBRAL TOXOPLASMOSIS
     Dosage: 150MG PER DAY
     Route: 048
     Dates: start: 20070414
  20. FRAGMIN [Concomitant]
     Indication: CEREBRAL TOXOPLASMOSIS
     Dosage: 3IU3 PER DAY
     Route: 042
     Dates: start: 20070414
  21. CATABON [Concomitant]
     Indication: SHOCK
     Route: 042
     Dates: start: 20070414
  22. INOVAN [Concomitant]
     Indication: SHOCK
     Route: 042
     Dates: start: 20070414

REACTIONS (20)
  - ACUTE RESPIRATORY FAILURE [None]
  - BONE MARROW FAILURE [None]
  - C-REACTIVE PROTEIN INCREASED [None]
  - CEREBRAL TOXOPLASMOSIS [None]
  - DISSEMINATED INTRAVASCULAR COAGULATION [None]
  - EATING DISORDER [None]
  - ENCEPHALITIS [None]
  - HAEMOGLOBIN DECREASED [None]
  - HYPERTHERMIA [None]
  - HYPOALBUMINAEMIA [None]
  - LOSS OF CONSCIOUSNESS [None]
  - MENINGISM [None]
  - MUSCULOSKELETAL STIFFNESS [None]
  - PANCYTOPENIA [None]
  - PNEUMOTHORAX [None]
  - RESPIRATORY ARREST [None]
  - SHOCK [None]
  - STAPHYLOCOCCAL INFECTION [None]
  - STAPHYLOCOCCAL SEPSIS [None]
  - STREPTOCOCCAL INFECTION [None]
